FAERS Safety Report 5315704-6 (Version None)
Quarter: 2007Q2

REPORT INFORMATION
  Report Type: 
  Country: None (occurrence: None)
  Receive Date: 20070430
  Receipt Date: 20070430
  Transmission Date: 20071010
  Serious: Yes (Life-Threatening, Hospitalization)
  Sender: FDA-Public Use
  Company Number: None

PATIENT
  Age: 49 Year
  Sex: Male
  Weight: 70.8 kg

DRUGS (3)
  1. PEGINTERFERON [Suspect]
  2. FLUOXETINE CAP [Concomitant]
  3. RIBAVIRIN TAB [Concomitant]

REACTIONS (1)
  - PANCREATITIS [None]
